FAERS Safety Report 23220146 (Version 2)
Quarter: 2024Q1

REPORT INFORMATION
  Report Type: Report from Study
  Country: US (occurrence: US)
  Receive Date: 20231123
  Receipt Date: 20240126
  Transmission Date: 20240410
  Serious: Yes (Hospitalization, Other)
  Sender: FDA-Public Use
  Company Number: US-ABBVIE-5505325

PATIENT
  Sex: Female
  Weight: 77 kg

DRUGS (5)
  1. SKYRIZI [Suspect]
     Active Substance: RISANKIZUMAB-RZAA
     Indication: Crohn^s disease
     Dosage: WEEK 12,THEREAFTER, STRENGTH:360MG/2.4M
     Route: 058
     Dates: start: 20231006
  2. SKYRIZI [Suspect]
     Active Substance: RISANKIZUMAB-RZAA
     Indication: Crohn^s disease
     Dosage: WEEK 0, 600MG/10ML
     Route: 042
     Dates: start: 20230714, end: 20230714
  3. SKYRIZI [Suspect]
     Active Substance: RISANKIZUMAB-RZAA
     Indication: Crohn^s disease
     Dosage: WEEK 04, 600MG/10ML
     Route: 042
     Dates: start: 2023, end: 2023
  4. SKYRIZI [Suspect]
     Active Substance: RISANKIZUMAB-RZAA
     Indication: Crohn^s disease
     Dosage: WEEK 08, 600MG/10ML
     Route: 042
     Dates: start: 2023, end: 2023
  5. SKYRIZI [Concomitant]
     Active Substance: RISANKIZUMAB-RZAA
     Indication: Product used for unknown indication
     Dosage: SDV
     Route: 065

REACTIONS (13)
  - Colostomy closure [Unknown]
  - Abdominal distension [Unknown]
  - Abdominal pain [Unknown]
  - Nausea [Unknown]
  - Abdominal mass [Unknown]
  - Asthenia [Unknown]
  - Anaemia [Unknown]
  - Insomnia [Unknown]
  - Adenocarcinoma metastatic [Unknown]
  - Upper limb fracture [Unknown]
  - Drug ineffective [Unknown]
  - Small intestinal obstruction [Unknown]
  - Postoperative adhesion [Unknown]

NARRATIVE: CASE EVENT DATE: 20230101
